APPROVED DRUG PRODUCT: E-Z-DISK
Active Ingredient: BARIUM SULFATE
Strength: 700MG
Dosage Form/Route: TABLET;ORAL
Application: N219840 | Product #001
Applicant: BRACCO DIAGNOSTICS INC
Approved: Aug 1, 2025 | RLD: Yes | RS: Yes | Type: RX